FAERS Safety Report 24132625 (Version 1)
Quarter: 2024Q3

REPORT INFORMATION
  Report Type: Spontaneous
  Country: US (occurrence: US)
  Receive Date: 20240724
  Receipt Date: 20240724
  Transmission Date: 20241016
  Serious: No
  Sender: INCYTE
  Company Number: US-INCYTE CORPORATION-2024IN007600

PATIENT

DRUGS (2)
  1. JAKAFI [Suspect]
     Active Substance: RUXOLITINIB
     Indication: Thrombocytosis
     Dosage: UNK
     Route: 048
  2. JAKAFI [Suspect]
     Active Substance: RUXOLITINIB
     Dosage: 15 MILLIGRAM, BID (INCREASED DOSE)
     Route: 048
     Dates: start: 202406

REACTIONS (3)
  - Fatigue [Unknown]
  - Decreased activity [Unknown]
  - Off label use [Unknown]

NARRATIVE: CASE EVENT DATE: 20240601
